FAERS Safety Report 5127965-7 (Version None)
Quarter: 2006Q4

REPORT INFORMATION
  Report Type: 
  Country: None (occurrence: None)
  Receive Date: 20061010
  Receipt Date: 20060927
  Transmission Date: 20070319
  Serious: Yes (Other)
  Sender: FDA-Public Use
  Company Number: 2006118756

PATIENT
  Age: 56 Year
  Sex: Female

DRUGS (2)
  1. ATORVASTATIN CALCIUM [Suspect]
     Indication: TYPE IIA HYPERLIPIDAEMIA
     Dosage: 40 MG, ORAL
     Route: 048
     Dates: end: 20060822
  2. EZETROL (EZETIMIBE) [Suspect]

REACTIONS (3)
  - PARANEOPLASTIC SYNDROME [None]
  - POLYMYOSITIS [None]
  - TRANSAMINASES INCREASED [None]
